FAERS Safety Report 7179127-X (Version None)
Quarter: 2010Q4

REPORT INFORMATION
  Report Type: 
  Country: None (occurrence: None)
  Receive Date: 20101221
  Receipt Date: 20101208
  Transmission Date: 20110411
  Serious: No
  Sender: FDA-Public Use
  Company Number: US-PFIZER INC-2010170079

PATIENT
  Age: 89 Year
  Sex: Female
  Weight: 49.887 kg

DRUGS (2)
  1. ADVIL [Suspect]
     Dosage: 1-2 LIQUID GELS DAILY
     Dates: start: 20101101
  2. NORVASC [Concomitant]
     Indication: HYPERTENSION

REACTIONS (1)
  - DRUG INEFFECTIVE [None]
